FAERS Safety Report 18192247 (Version 5)
Quarter: 2021Q4

REPORT INFORMATION
  Report Type: Spontaneous
  Country: US (occurrence: US)
  Receive Date: 20200825
  Receipt Date: 20211223
  Transmission Date: 20220303
  Serious: Yes (Hospitalization, Disabling)
  Sender: FDA-Public Use
  Company Number: US-PFIZER INC-2020327894

PATIENT
  Age: 87 Year
  Sex: Female
  Weight: 69.388 kg

DRUGS (5)
  1. INSPRA [Suspect]
     Active Substance: EPLERENONE
     Indication: Swelling
     Dosage: 25 MG (SHE STARTED TAKING INSPRA 2 YEARS AGO GIVE OR TAKE)
     Dates: start: 2019
  2. INSPRA [Suspect]
     Active Substance: EPLERENONE
     Dosage: 25 MG, DAILY (25MG ONE WAFER SWALLOW WITH WATER DAILY)
  3. COREG [Concomitant]
     Active Substance: CARVEDILOL
     Indication: Cardiomegaly
     Dosage: 25 MG (2.5-3 YEARS AGO)
     Dates: start: 2018
  4. LOSARTAN [Concomitant]
     Active Substance: LOSARTAN
     Indication: Cardiomegaly
     Dosage: 100 MG, 1X/DAY (2.5-3 YEARS AGO)
     Dates: start: 2018
  5. LOSARTAN [Concomitant]
     Active Substance: LOSARTAN
     Indication: Blood pressure abnormal

REACTIONS (14)
  - Cardiac failure congestive [Recovering/Resolving]
  - Disability [Unknown]
  - Visual impairment [Unknown]
  - Lacrimation increased [Unknown]
  - Gait disturbance [Unknown]
  - Illness [Unknown]
  - Dyspnoea [Unknown]
  - Eating disorder [Unknown]
  - Cough [Unknown]
  - Asthenia [Unknown]
  - Dizziness [Unknown]
  - Malaise [Unknown]
  - Product dose omission issue [Unknown]
  - Off label use [Unknown]

NARRATIVE: CASE EVENT DATE: 20211212
